FAERS Safety Report 9372048 (Version 1)
Quarter: 2013Q2

REPORT INFORMATION
  Report Type: Report from Study
  Country: US (occurrence: US)
  Receive Date: 20130627
  Receipt Date: 20130627
  Transmission Date: 20140414
  Serious: Yes (Other)
  Sender: FDA-Public Use
  Company Number: US-MYLANLABS-2012S1013674

PATIENT
  Age: 41 Year
  Sex: Male

DRUGS (8)
  1. CLOZAPINE TABLETS [Suspect]
     Indication: SCHIZOPHRENIA, UNDIFFERENTIATED TYPE
     Route: 048
     Dates: end: 20121001
  2. CLOZAPINE TABLETS [Suspect]
     Indication: SCHIZOPHRENIA, UNDIFFERENTIATED TYPE
     Dates: start: 2006
  3. LATUDA [Concomitant]
  4. DEPAKOTE [Concomitant]
  5. LEXAPRO [Concomitant]
  6. COLACE [Concomitant]
  7. FAMOTIDINE [Concomitant]
  8. METFORMIN [Concomitant]
     Dosage: METFORMIN, 250MG QAM AND 500MG QHS

REACTIONS (1)
  - Granulocytopenia [Not Recovered/Not Resolved]
